FAERS Safety Report 9303170 (Version 3)
Quarter: 2013Q3

REPORT INFORMATION
  Report Type: Spontaneous
  Country: US (occurrence: None)
  Receive Date: 20130517
  Receipt Date: 20130719
  Transmission Date: 20140515
  Serious: Yes (Other)
  Sender: FDA-Public Use
  Company Number: ACO_34913_2013

PATIENT
  Sex: Female
  Weight: 61.2 kg

DRUGS (8)
  1. AMPYRA (DALFAMPRIDINE) TABLET, 10MG [Suspect]
     Indication: PRODUCT USED FOR UNKNOWN INDICATION
     Route: 048
     Dates: start: 2013
  2. BACLOFEN (BACLOFEN) [Concomitant]
  3. CITRACAL PLUS (CALCIUM CITRATE, COLECALCIFEROL) [Concomitant]
  4. TEMAZEPAM (TEMAZEPAM) [Concomitant]
  5. VITAMIN D3 (COLECALCIFEROL) [Concomitant]
  6. FISH OIL (FISH OIL) [Concomitant]
  7. BETASERON (INTERFERON BETA-1B) [Concomitant]
  8. VITAMIN B12 (CYANOCOBALAMIN) [Concomitant]

REACTIONS (5)
  - Chest discomfort [None]
  - Dizziness [None]
  - Chronic obstructive pulmonary disease [None]
  - Neck pain [None]
  - Back pain [None]
